FAERS Safety Report 11925481 (Version 2)
Quarter: 2016Q1

REPORT INFORMATION
  Report Type: Spontaneous
  Country: None (occurrence: US)
  Receive Date: 20160118
  Receipt Date: 20160201
  Transmission Date: 20160526
  Serious: No
  Sender: FDA-Public Use
  Company Number: US-MATRIXX INITIATIVES, INC.-1046586

PATIENT
  Age: 31 Year
  Sex: Female

DRUGS (1)
  1. ZICAM COLD REMEDY NASAL SWABS (HOMEOPATHICS) [Suspect]
     Active Substance: HOMEOPATHICS
     Route: 045
     Dates: start: 20160113, end: 20160114

REACTIONS (2)
  - Anosmia [Recovering/Resolving]
  - Ageusia [Recovered/Resolved]

NARRATIVE: CASE EVENT DATE: 20160116
